FAERS Safety Report 5196917-3 (Version None)
Quarter: 2007Q1

REPORT INFORMATION
  Report Type: 
  Country: None (occurrence: None)
  Receive Date: 20070103
  Receipt Date: 20061222
  Transmission Date: 20070707
  Serious: Yes (Life-Threatening, Hospitalization)
  Sender: FDA-Public Use
  Company Number: JP-ROCHE-476218

PATIENT
  Age: 63 Year
  Sex: Male

DRUGS (1)
  1. PANALDINE [Suspect]
     Indication: THROMBOSIS PROPHYLAXIS
     Dosage: FURTHER INDICATIONS: STENT PLACEMENT AND ACUTE MYOCARDIAL INFARCTION.
     Route: 048
     Dates: start: 20061017, end: 20061203

REACTIONS (5)
  - NASOPHARYNGEAL DISORDER [None]
  - NEUTROPHIL COUNT DECREASED [None]
  - PHARYNGOLARYNGEAL PAIN [None]
  - PYREXIA [None]
  - WHITE BLOOD CELL COUNT DECREASED [None]
